FAERS Safety Report 6254261-7 (Version None)
Quarter: 2009Q3

REPORT INFORMATION
  Report Type: 
  Country: None (occurrence: None)
  Receive Date: 20090702
  Receipt Date: 20090626
  Transmission Date: 20100115
  Serious: Yes (Hospitalization, Other)
  Sender: FDA-Public Use
  Company Number: CA-AMGEN-KDL338932

PATIENT
  Sex: Male

DRUGS (4)
  1. ENBREL [Suspect]
     Indication: JUVENILE ARTHRITIS
     Route: 058
     Dates: start: 20090306, end: 20090320
  2. SULFASALAZINE [Concomitant]
     Dates: start: 20081018
  3. NAPROXEN [Concomitant]
     Dates: start: 20081018
  4. RABEPRAZOLE SODIUM [Concomitant]

REACTIONS (5)
  - BLOOD CREATINE PHOSPHOKINASE INCREASED [None]
  - INTERVERTEBRAL DISC DISORDER [None]
  - MYALGIA [None]
  - PAIN IN EXTREMITY [None]
  - POLYMYOSITIS [None]
